FAERS Safety Report 8034021-7 (Version None)
Quarter: 2011Q4

REPORT INFORMATION
  Report Type: 
  Country: None (occurrence: None)
  Receive Date: 20111202
  Receipt Date: 20100121
  Transmission Date: 20120403
  Serious: Yes (Disabling, Other)
  Sender: FDA-Public Use
  Company Number: 2010SP005471

PATIENT
  Age: 23 Year
  Sex: Female
  Weight: 97.5234 kg

DRUGS (3)
  1. NUVARING [Suspect]
     Indication: CONTRACEPTION
     Dates: end: 20081101
  2. NUVARING [Suspect]
     Indication: CONTRACEPTION
     Dates: start: 20051107, end: 20070101
  3. ALBUTEROL [Concomitant]

REACTIONS (6)
  - CANDIDA TEST POSITIVE [None]
  - CEREBRAL INFARCTION [None]
  - CONSTIPATION [None]
  - CEREBROVASCULAR ACCIDENT [None]
  - MIGRAINE [None]
  - TRANSIENT ISCHAEMIC ATTACK [None]
